FAERS Safety Report 4803719-3 (Version None)
Quarter: 2005Q3

REPORT INFORMATION
  Report Type: 
  Country: None (occurrence: None)
  Receive Date: 20050920
  Receipt Date: 20050729
  Transmission Date: 20060218
  Serious: No
  Sender: FDA-Public Use
  Company Number: US-YAMANOUCHI-YPA20050390

PATIENT
  Age: 39 Year
  Sex: Female
  Weight: 86.1834 kg

DRUGS (2)
  1. VESICARE [Suspect]
     Indication: BLADDER SPASM
     Dosage: 5 MG QD PO
     Route: 048
     Dates: start: 20050728
  2. VESICARE [Suspect]
     Indication: POLLAKIURIA
     Dosage: 5 MG QD PO
     Route: 048
     Dates: start: 20050728

REACTIONS (1)
  - URINARY RETENTION [None]
